FAERS Safety Report 4401873-9 (Version None)
Quarter: 2004Q3

REPORT INFORMATION
  Report Type: 
  Country: None (occurrence: None)
  Receive Date: 20040714
  Receipt Date: 20040708
  Transmission Date: 20050211
  Serious: Yes (Other)
  Sender: FDA-Public Use
  Company Number: 2004-05-2490

PATIENT

DRUGS (1)
  1. LERTAMINE-D (LORATADINE 5MG / PSEUDOPHEDRINE 120MG) EXTENDED RELEASE T [Suspect]
     Dosage: 1-2 TABS/DAY ORAL
     Route: 048
     Dates: start: 20040401, end: 20040508

REACTIONS (2)
  - DYSURIA [None]
  - RENAL FAILURE ACUTE [None]
